FAERS Safety Report 5828534-3 (Version None)
Quarter: 2008Q3

REPORT INFORMATION
  Report Type: 
  Country: None (occurrence: None)
  Receive Date: 20080731
  Receipt Date: 20080716
  Transmission Date: 20090109
  Serious: Yes (Other)
  Sender: FDA-Public Use
  Company Number: NL-GENENTECH-264995

PATIENT
  Sex: Male

DRUGS (3)
  1. AVASTIN [Suspect]
     Indication: COLON CANCER
     Dosage: UNK
     Route: 042
     Dates: start: 20080101, end: 20080101
  2. CAPECITABINE [Concomitant]
     Indication: COLON CANCER
     Dosage: UNK
     Dates: start: 20080101, end: 20080101
  3. OXALIPLATIN [Concomitant]
     Indication: COLON CANCER
     Dosage: UNK
     Dates: start: 20080101, end: 20080101

REACTIONS (2)
  - BLINDNESS TRANSIENT [None]
  - OSCILLOPSIA [None]
